FAERS Safety Report 14200792 (Version 2)
Quarter: 2017Q4

REPORT INFORMATION
  Report Type: Spontaneous
  Country: US (occurrence: US)
  Receive Date: 20171117
  Receipt Date: 20171215
  Transmission Date: 20180321
  Serious: No
  Sender: FDA-Public Use
  Company Number: US-NOVOPROD-547141

PATIENT
  Age: 62 Year
  Sex: Female

DRUGS (2)
  1. NOVOLOG [Suspect]
     Active Substance: INSULIN ASPART
     Indication: TYPE 2 DIABETES MELLITUS
     Route: 058
     Dates: start: 2015
  2. LEVEMIR [Suspect]
     Active Substance: INSULIN DETEMIR
     Indication: TYPE 2 DIABETES MELLITUS
     Dosage: 36 U, QD
     Route: 058
     Dates: start: 2014

REACTIONS (6)
  - Device breakage [Recovered/Resolved]
  - Weight increased [Recovered/Resolved]
  - Blood glucose increased [Recovered/Resolved]
  - Headache [Recovered/Resolved]
  - Product use issue [Recovered/Resolved]
  - Insomnia [Recovered/Resolved]
